FAERS Safety Report 4765258-8 (Version None)
Quarter: 2005Q3

REPORT INFORMATION
  Report Type: 
  Country: None (occurrence: None)
  Receive Date: 20050906
  Receipt Date: 20050819
  Transmission Date: 20060218
  Serious: Yes (Hospitalization)
  Sender: FDA-Public Use
  Company Number: JP_050807376

PATIENT
  Age: 84 Year
  Sex: Female
  Weight: 55 kg

DRUGS (10)
  1. EVISTA [Suspect]
     Indication: OSTEOPOROSIS
     Dosage: 60 MG/1 DAY
     Dates: start: 20050712, end: 20050815
  2. MOBIC [Concomitant]
  3. ROCALTROL [Concomitant]
  4. NEUROTROPIN ORGAN LYSATE, STANDARDIZED) [Concomitant]
  5. ASPIRIN [Concomitant]
  6. NORVASC [Concomitant]
  7. RHYTHMY (RILMAZAFONE) [Concomitant]
  8. DEPAS (ETIZOLAM) [Concomitant]
  9. FAMOTIDINE [Concomitant]
  10. COVERSYL [Concomitant]

REACTIONS (8)
  - ALANINE AMINOTRANSFERASE INCREASED [None]
  - ASPARTATE AMINOTRANSFERASE INCREASED [None]
  - BLOOD ALKALINE PHOSPHATASE INCREASED [None]
  - BLOOD BILIRUBIN INCREASED [None]
  - BLOOD LACTATE DEHYDROGENASE INCREASED [None]
  - GAMMA-GLUTAMYLTRANSFERASE INCREASED [None]
  - HEPATIC FUNCTION ABNORMAL [None]
  - MALAISE [None]
